FAERS Safety Report 17265503 (Version 1)
Quarter: 2020Q1

REPORT INFORMATION
  Report Type: Spontaneous
  Country: DE (occurrence: DE)
  Receive Date: 20200114
  Receipt Date: 20200114
  Transmission Date: 20200409
  Serious: Yes (Other)
  Sender: FDA-Public Use
  Company Number: DE-UCBSA-2020000510

PATIENT
  Age: 45 Year
  Sex: Female

DRUGS (1)
  1. CIMZIA [Suspect]
     Active Substance: CERTOLIZUMAB PEGOL
     Indication: PRODUCT USED FOR UNKNOWN INDICATION
     Dosage: UNK UNK, EV 2 WEEKS(QOW)

REACTIONS (6)
  - Onychomycosis [Unknown]
  - Fungal skin infection [Unknown]
  - Tinea versicolour [Unknown]
  - Skin discolouration [Unknown]
  - Erythema [Unknown]
  - Dandruff [Unknown]
